FAERS Safety Report 16380632 (Version 1)
Quarter: 2019Q2

REPORT INFORMATION
  Report Type: Spontaneous
  Country: US (occurrence: US)
  Receive Date: 20190601
  Receipt Date: 20190601
  Transmission Date: 20190711
  Serious: No
  Sender: FDA-Public Use
  Company Number: US-JNJFOC-20190520689

PATIENT
  Age: 69 Year
  Sex: Female

DRUGS (3)
  1. ZYRTEC 10MG IR TABLET [Suspect]
     Active Substance: CETIRIZINE HYDROCHLORIDE
     Indication: ADVERSE DRUG REACTION
     Route: 048
     Dates: start: 20181213
  2. ZYRTEC 10MG IR TABLET [Suspect]
     Active Substance: CETIRIZINE HYDROCHLORIDE
     Indication: PRURITUS
     Route: 048
     Dates: start: 20181213
  3. ZYRTEC 10MG IR TABLET [Suspect]
     Active Substance: CETIRIZINE HYDROCHLORIDE
     Indication: PREMEDICATION
     Route: 048
     Dates: start: 20181213

REACTIONS (2)
  - Product use in unapproved indication [Unknown]
  - Therapeutic response unexpected [Unknown]

NARRATIVE: CASE EVENT DATE: 20181213
